FAERS Safety Report 7569583-7 (Version None)
Quarter: 2011Q2

REPORT INFORMATION
  Report Type: 
  Country: None (occurrence: None)
  Receive Date: 20110621
  Receipt Date: 20110621
  Transmission Date: 20111010
  Serious: Yes (Hospitalization)
  Sender: FDA-Public Use
  Company Number: None

PATIENT
  Sex: Female
  Weight: 89.1 kg

DRUGS (2)
  1. GEODON [Concomitant]
  2. FANAPT [Suspect]
     Indication: BIPOLAR DISORDER
     Dosage: 1MG 1 ORALLY
     Route: 048
     Dates: start: 20110526

REACTIONS (7)
  - MIGRAINE [None]
  - THIRST [None]
  - HEART RATE INCREASED [None]
  - NAUSEA [None]
  - BLOOD PRESSURE INCREASED [None]
  - DIZZINESS [None]
  - ANXIETY [None]
